FAERS Safety Report 14509087 (Version 1)
Quarter: 2018Q1

REPORT INFORMATION
  Report Type: Spontaneous
  Country: US (occurrence: US)
  Receive Date: 20180207
  Receipt Date: 20180207
  Transmission Date: 20180509
  Serious: No
  Sender: FDA-Public Use
  Company Number: None

PATIENT
  Age: 59 Year
  Sex: Male

DRUGS (1)
  1. FORTEO [Suspect]
     Active Substance: TERIPARATIDE

REACTIONS (4)
  - Disorientation [None]
  - Muscle spasms [None]
  - Hypotension [None]
  - Dehydration [None]

NARRATIVE: CASE EVENT DATE: 20180117
